FAERS Safety Report 9468791 (Version 1)
Quarter: 2013Q3

REPORT INFORMATION
  Report Type: Spontaneous
  Country: US (occurrence: None)
  Receive Date: 20130814
  Receipt Date: 20130814
  Transmission Date: 20140515
  Serious: Yes (Other)
  Sender: FDA-Public Use
  Company Number: HA13-244-AE

PATIENT
  Age: 40 Year
  Sex: Female
  Weight: 46.72 kg

DRUGS (3)
  1. GABAPENTIN [Suspect]
     Indication: FIBROMYALGIA
     Dosage: 1 CAPSULE,
     Route: 048
     Dates: start: 201305
  2. DICLOFENAC (VOLTRAN) [Concomitant]
  3. PREGAMBLIN (LYRICA) [Concomitant]

REACTIONS (2)
  - Arthritis [None]
  - Hepatic enzyme increased [None]
